FAERS Safety Report 5478572-8 (Version None)
Quarter: 2007Q4

REPORT INFORMATION
  Report Type: 
  Country: None (occurrence: None)
  Receive Date: 20071005
  Receipt Date: 20070925
  Transmission Date: 20080405
  Serious: Yes (Hospitalization)
  Sender: FDA-Public Use
  Company Number: ES-ELI_LILLY_AND_COMPANY-ES200709006038

PATIENT
  Age: 80 Year
  Sex: Female

DRUGS (4)
  1. FORTEO [Suspect]
     Indication: OSTEOPOROSIS
     Dosage: 20 UG, UNKNOWN
     Route: 058
     Dates: start: 20061101
  2. DIURETICS [Concomitant]
  3. ANTIDEPRESSANTS [Concomitant]
     Indication: DEPRESSION
  4. ADIRO [Concomitant]
     Indication: PERIPHERAL VASCULAR DISORDER

REACTIONS (2)
  - FALL [None]
  - HUMERUS FRACTURE [None]
